FAERS Safety Report 4486216-7 (Version None)
Quarter: 2004Q3

REPORT INFORMATION
  Report Type: 
  Country: None (occurrence: None)
  Receive Date: 20040921
  Receipt Date: 20040426
  Transmission Date: 20050211
  Serious: Yes (Hospitalization)
  Sender: FDA-Public Use
  Company Number: 163-20785-04040624

PATIENT
  Age: 78 Year
  Sex: Female

DRUGS (2)
  1. THALOMID [Suspect]
     Indication: LUNG NEOPLASM MALIGNANT
     Dosage: 50 MG, DAILY, ORAL
     Route: 048
     Dates: start: 20040408
  2. THALOMID [Suspect]
     Indication: TRACHEAL CANCER
     Dosage: 50 MG, DAILY, ORAL
     Route: 048
     Dates: start: 20040408

REACTIONS (1)
  - GASTROINTESTINAL HAEMORRHAGE [None]
